FAERS Safety Report 16563043 (Version 1)
Quarter: 2019Q3

REPORT INFORMATION
  Report Type: Spontaneous
  Country: AT (occurrence: AT)
  Receive Date: 20190711
  Receipt Date: 20190711
  Transmission Date: 20191004
  Serious: Yes (Other)
  Sender: FDA-Public Use
  Company Number: AT-BAUSCH-BL-2019-019955

PATIENT

DRUGS (2)
  1. VERTEPORFIN (NVO) [Suspect]
     Active Substance: VERTEPORFIN
     Indication: CHOROIDAL HAEMANGIOMA
     Dosage: 1-MINUTE BOLUS INJECTION
     Route: 040
  2. VERTEPORFIN (NVO) [Suspect]
     Active Substance: VERTEPORFIN
     Indication: PRODUCT USE IN UNAPPROVED INDICATION

REACTIONS (2)
  - Subretinal fluid [Unknown]
  - Drug ineffective for unapproved indication [Unknown]
